FAERS Safety Report 25251429 (Version 1)
Quarter: 2025Q2

REPORT INFORMATION
  Report Type: Spontaneous
  Country: US (occurrence: None)
  Receive Date: 20250429
  Receipt Date: 20250429
  Transmission Date: 20250717
  Serious: Yes (Hospitalization)
  Sender: FDA-CTU
  Company Number: None

PATIENT
  Age: 76 Year
  Sex: Female
  Weight: 53.5 kg

DRUGS (4)
  1. FLUOROURACIL [Suspect]
     Active Substance: FLUOROURACIL
  2. CAMPTOSAR [Suspect]
     Active Substance: IRINOTECAN HYDROCHLORIDE
  3. LEUCOVORIN CALCIUM [Suspect]
     Active Substance: LEUCOVORIN CALCIUM
  4. ELOXATIN [Suspect]
     Active Substance: OXALIPLATIN

REACTIONS (9)
  - Fatigue [None]
  - Oedema peripheral [None]
  - Nausea [None]
  - Vomiting [None]
  - Decreased appetite [None]
  - Early satiety [None]
  - Oesophageal mass [None]
  - Oesophageal stent stenosis [None]
  - Dysphagia [None]

NARRATIVE: CASE EVENT DATE: 20250426
